FAERS Safety Report 4578500-3 (Version None)
Quarter: 2005Q1

REPORT INFORMATION
  Report Type: 
  Country: None (occurrence: None)
  Receive Date: 20050204
  Receipt Date: 20050204
  Transmission Date: 20050727
  Serious: Yes (Other)
  Sender: FDA-Public Use
  Company Number: None

PATIENT
  Age: 44 Year
  Sex: Female

DRUGS (6)
  1. PREVACID [Suspect]
     Dosage: 30 MG   DAILY   ORAL
     Route: 048
     Dates: start: 20041201, end: 20041202
  2. VIT. K, [Concomitant]
  3. VIT B+C [Concomitant]
  4. LACTULOSE [Concomitant]
  5. PROMETHAZINE [Concomitant]
  6. POTASSIUM CHLORIDE [Concomitant]

REACTIONS (1)
  - RASH [None]
